FAERS Safety Report 12245142 (Version 1)
Quarter: 2016Q2

REPORT INFORMATION
  Report Type: Spontaneous
  Country: JP (occurrence: JP)
  Receive Date: 20160407
  Receipt Date: 20160407
  Transmission Date: 20160815
  Serious: Yes (Other)
  Sender: FDA-Public Use
  Company Number: JP-BRISTOL-MYERS SQUIBB COMPANY-BMS-2016-024725

PATIENT
  Age: 63 Year
  Sex: Female

DRUGS (4)
  1. APREPITANT. [Interacting]
     Active Substance: APREPITANT
     Indication: OVARIAN CANCER
     Route: 065
  2. CISPLATIN. [Suspect]
     Active Substance: CISPLATIN
     Indication: OVARIAN CANCER
     Route: 065
  3. WARFARIN SODIUM. [Interacting]
     Active Substance: WARFARIN SODIUM
     Indication: PULMONARY EMBOLISM
     Route: 065
  4. IRINOTECAN [Suspect]
     Active Substance: IRINOTECAN
     Indication: OVARIAN CANCER
     Route: 065

REACTIONS (3)
  - Drug interaction [Unknown]
  - Pelvic venous thrombosis [Unknown]
  - Pulmonary embolism [Unknown]
